FAERS Safety Report 13660354 (Version 1)
Quarter: 2017Q2

REPORT INFORMATION
  Report Type: Spontaneous
  Country: PY (occurrence: PY)
  Receive Date: 20170616
  Receipt Date: 20170616
  Transmission Date: 20170830
  Serious: Yes (Other)
  Sender: FDA-Public Use
  Company Number: PY-BAYER-2016-128174

PATIENT
  Age: 37 Year
  Sex: Female

DRUGS (4)
  1. ANTI-FLU [ACETYLSALICYLIC ACID,CODEINE PHOSPHATE,PARACETAMOL,PHENO [Concomitant]
  2. BISACODYL. [Concomitant]
     Active Substance: BISACODYL
     Route: 048
  3. QLAIRA [Suspect]
     Active Substance: DIENOGEST\ESTRADIOL VALERATE
     Indication: ORAL CONTRACEPTION
     Dosage: 1 DF, QD
     Route: 048
  4. IBUPROFEN. [Concomitant]
     Active Substance: IBUPROFEN
     Route: 048

REACTIONS (5)
  - Drug ineffective [None]
  - Premature labour [None]
  - Pregnancy on oral contraceptive [None]
  - Ureaplasma infection [Recovered/Resolved]
  - Menstruation delayed [Unknown]

NARRATIVE: CASE EVENT DATE: 201605
